FAERS Safety Report 24727609 (Version 1)
Quarter: 2024Q4

REPORT INFORMATION
  Report Type: Spontaneous
  Country: US (occurrence: None)
  Receive Date: 20241212
  Receipt Date: 20241212
  Transmission Date: 20250115
  Serious: Yes (Life-Threatening, Hospitalization, Other)
  Sender: Public
  Company Number: None

PATIENT
  Age: 73 Year
  Sex: Male
  Weight: 78.75 kg

DRUGS (5)
  1. LEVOTHYROXINE [Suspect]
     Active Substance: LEVOTHYROXINE
     Indication: Thyroid function test abnormal
     Dosage: OTHER QUANTITY : 1 CAPSULE(S);?FREQUENCY : DAILY;?
     Route: 048
     Dates: start: 20241109, end: 20241123
  2. ATORVASTATIN [Concomitant]
     Active Substance: ATORVASTATIN
  3. FINASTERIDE [Concomitant]
     Active Substance: FINASTERIDE
  4. tamsulusin [Concomitant]
  5. VITAMINS [Concomitant]
     Active Substance: VITAMINS

REACTIONS (19)
  - Rash [None]
  - Wound [None]
  - Therapy cessation [None]
  - Cough [None]
  - Faeces discoloured [None]
  - Chromaturia [None]
  - Peripheral swelling [None]
  - Joint swelling [None]
  - Dry skin [None]
  - Hyperkeratosis [None]
  - Wound infection [None]
  - Skin fissures [None]
  - Rash [None]
  - Groin pain [None]
  - Thrombosis [None]
  - Genital discolouration [None]
  - Dyspnoea [None]
  - Loss of consciousness [None]
  - Umbilical hernia [None]

NARRATIVE: CASE EVENT DATE: 20241125
